FAERS Safety Report 5009786-9 (Version None)
Quarter: 2006Q2

REPORT INFORMATION
  Report Type: 
  Country: None (occurrence: None)
  Receive Date: 20060524
  Receipt Date: 20060404
  Transmission Date: 20061013
  Serious: Yes (Hospitalization)
  Sender: FDA-Public Use
  Company Number: PHHO2006JP05515

PATIENT
  Age: 54 Year
  Sex: Male

DRUGS (6)
  1. GLEEVEC [Suspect]
     Indication: GASTROINTESTINAL STROMAL TUMOUR
     Dosage: 400 MG, QD
     Route: 048
     Dates: start: 20060223, end: 20060402
  2. TAKEPRON [Concomitant]
     Dates: end: 20060403
  3. BISOLVON [Concomitant]
  4. URSO [Concomitant]
     Dates: end: 20060403
  5. BIOFERMIN [Concomitant]
     Dates: end: 20060403
  6. GASMOTIN [Concomitant]
     Dates: end: 20060403

REACTIONS (6)
  - ABDOMINAL DISTENSION [None]
  - ABDOMINAL PAIN UPPER [None]
  - CONCOMITANT DISEASE AGGRAVATED [None]
  - DUODENAL OBSTRUCTION [None]
  - ERUCTATION [None]
  - ORAL INTAKE REDUCED [None]
